FAERS Safety Report 9921270 (Version 1)
Quarter: 2014Q1

REPORT INFORMATION
  Report Type: Spontaneous
  Country: US (occurrence: None)
  Receive Date: 20140221
  Receipt Date: 20140221
  Transmission Date: 20141002
  Serious: Yes (Other)
  Sender: FDA-Public Use
  Company Number: None

PATIENT
  Age: 57 None
  Sex: Male

DRUGS (1)
  1. OXYCODONE/APAP [Suspect]
     Dosage: 1 TAB-2 TABS 3 TIMES PER DAY ORAL
     Route: 048
     Dates: start: 20140117

REACTIONS (1)
  - Drug ineffective [None]
